FAERS Safety Report 20601139 (Version 1)
Quarter: 2022Q1

REPORT INFORMATION
  Report Type: Spontaneous
  Country: GB (occurrence: GB)
  Receive Date: 20220316
  Receipt Date: 20220316
  Transmission Date: 20220424
  Serious: Yes (Other)
  Sender: FDA-Public Use
  Company Number: GB-NOVARTISPH-NVSC2022GB056439

PATIENT
  Age: 54 Year
  Sex: Female
  Weight: 63.5 kg

DRUGS (26)
  1. CARBOPLATIN [Suspect]
     Active Substance: CARBOPLATIN
     Indication: Non-small cell lung cancer
     Dosage: 560 MG
     Route: 065
     Dates: start: 20200212
  2. PACLITAXEL [Suspect]
     Active Substance: PACLITAXEL
     Indication: Non-small cell lung cancer
     Dosage: 336 MG
     Route: 065
     Dates: start: 20200212
  3. FILGRASTIM [Suspect]
     Active Substance: FILGRASTIM
     Indication: White blood cell count decreased
     Dosage: UNK
     Route: 065
     Dates: start: 20200513, end: 20200515
  4. BEVACIZUMAB [Suspect]
     Active Substance: BEVACIZUMAB
     Indication: Non-small cell lung cancer
     Dosage: 1100 MG
     Route: 065
     Dates: start: 20200212
  5. ATEZOLIZUMAB [Suspect]
     Active Substance: ATEZOLIZUMAB
     Indication: Non-small cell lung cancer
     Dosage: 1200 MG, TIW (ON 26 AUG 2020, RECEIVED MOST RECENT DOSE OF IV ATEZOLIZUMAB)
     Route: 041
     Dates: start: 20200212
  6. ATEZOLIZUMAB [Suspect]
     Active Substance: ATEZOLIZUMAB
     Dosage: 1200 MG, TIW
     Route: 041
     Dates: start: 20200304
  7. ATEZOLIZUMAB [Suspect]
     Active Substance: ATEZOLIZUMAB
     Dosage: 1200 MG, TIW
     Route: 041
     Dates: start: 20200325
  8. ATEZOLIZUMAB [Suspect]
     Active Substance: ATEZOLIZUMAB
     Dosage: 1200 MG, TIW
     Route: 041
     Dates: start: 20200415
  9. ATEZOLIZUMAB [Suspect]
     Active Substance: ATEZOLIZUMAB
     Dosage: 1200 MG, TIW
     Route: 041
     Dates: start: 20200513
  10. ATEZOLIZUMAB [Suspect]
     Active Substance: ATEZOLIZUMAB
     Dosage: 1200 MG, TIW
     Route: 041
     Dates: start: 20200603
  11. ATEZOLIZUMAB [Suspect]
     Active Substance: ATEZOLIZUMAB
     Dosage: 1200 MG, TIW
     Route: 041
     Dates: start: 20200614
  12. ATEZOLIZUMAB [Suspect]
     Active Substance: ATEZOLIZUMAB
     Dosage: 1200 MG, TIW
     Route: 041
     Dates: start: 20200715
  13. ATEZOLIZUMAB [Suspect]
     Active Substance: ATEZOLIZUMAB
     Dosage: 1200 MG, TIW
     Route: 041
     Dates: start: 20200805
  14. ATEZOLIZUMAB [Suspect]
     Active Substance: ATEZOLIZUMAB
     Dosage: 1200 MG, TIW
     Route: 041
     Dates: start: 20200826
  15. ATEZOLIZUMAB [Suspect]
     Active Substance: ATEZOLIZUMAB
     Dosage: 1200 MG, TIW
     Route: 041
     Dates: start: 20200916
  16. ATEZOLIZUMAB [Suspect]
     Active Substance: ATEZOLIZUMAB
     Dosage: UNK
     Route: 065
  17. ATEZOLIZUMAB [Suspect]
     Active Substance: ATEZOLIZUMAB
     Dosage: UNK
     Route: 041
  18. LOPERAMIDE [Concomitant]
     Active Substance: LOPERAMIDE
     Indication: Diarrhoea
     Dosage: UNK
     Route: 065
     Dates: start: 20200601
  19. CRIZOTINIB [Concomitant]
     Active Substance: CRIZOTINIB
     Indication: Product used for unknown indication
     Dosage: UNK
     Route: 065
  20. CYCLIZINE [Concomitant]
     Active Substance: CYCLIZINE
     Indication: Abdominal pain upper
     Dosage: UNK
     Route: 065
     Dates: start: 20200521
  21. CYCLIZINE [Concomitant]
     Active Substance: CYCLIZINE
     Indication: Nausea
     Dosage: UNK
     Route: 065
     Dates: start: 20200811
  22. DEXAMETHASONE [Concomitant]
     Active Substance: DEXAMETHASONE
     Indication: Weight decreased
     Dosage: 20 MG, QD
     Route: 065
     Dates: start: 20200212, end: 20200212
  23. DEXAMETHASONE [Concomitant]
     Active Substance: DEXAMETHASONE
     Dosage: 20 MG
     Route: 065
     Dates: start: 20200304, end: 20200304
  24. DEXAMETHASONE [Concomitant]
     Active Substance: DEXAMETHASONE
     Dosage: 20 MG
     Route: 065
     Dates: start: 20200325, end: 20200325
  25. DEXAMETHASONE [Concomitant]
     Active Substance: DEXAMETHASONE
     Dosage: 20 MG
     Route: 065
     Dates: start: 20200415, end: 20200415
  26. DEXAMETHASONE [Concomitant]
     Active Substance: DEXAMETHASONE
     Dosage: 1 MG, QD
     Route: 065
     Dates: start: 20200504

REACTIONS (4)
  - Hepatic failure [Not Recovered/Not Resolved]
  - Neuropathy peripheral [Unknown]
  - Bone pain [Not Recovered/Not Resolved]
  - Pain in extremity [Unknown]

NARRATIVE: CASE EVENT DATE: 20200715
